FAERS Safety Report 19686372 (Version 3)
Quarter: 2021Q3

REPORT INFORMATION
  Report Type: Other
  Country: CN (occurrence: CN)
  Receive Date: 20210811
  Receipt Date: 20210923
  Transmission Date: 20211014
  Serious: Yes (Hospitalization)
  Sender: FDA-Public Use
  Company Number: CN-ROCHE-2888572

PATIENT
  Age: 59 Year
  Sex: Female
  Weight: 47 kg

DRUGS (7)
  1. CAPECITABINE. [Suspect]
     Active Substance: CAPECITABINE
     Dosage: 2,000MG/D FOR ODD DAYS AND 2,500 MG/D FOR EVEN DAYS
     Route: 048
     Dates: start: 20210309, end: 20210531
  2. CAPECITABINE. [Suspect]
     Active Substance: CAPECITABINE
     Indication: BREAST CANCER
     Route: 048
     Dates: start: 20201126, end: 20210308
  3. CAPECITABINE. [Suspect]
     Active Substance: CAPECITABINE
     Dosage: 1,500MG/D, 1,000 MG IN THE MORNING AND 500 MG IN THE EVENING;
     Route: 048
     Dates: start: 20210601, end: 20210718
  4. LAPATINIB [Suspect]
     Active Substance: LAPATINIB
     Indication: BREAST CANCER
     Route: 048
     Dates: start: 20201126, end: 20210308
  5. CEFACLOR. [Concomitant]
     Active Substance: CEFACLOR
  6. LAPATINIB [Suspect]
     Active Substance: LAPATINIB
     Route: 048
     Dates: start: 20210309
  7. RABEPRAZOLE [Concomitant]
     Active Substance: RABEPRAZOLE

REACTIONS (1)
  - Laryngeal mass [Not Recovered/Not Resolved]

NARRATIVE: CASE EVENT DATE: 20210715
